FAERS Safety Report 7660531-8 (Version None)
Quarter: 2011Q3

REPORT INFORMATION
  Report Type: 
  Country: None (occurrence: None)
  Receive Date: 20110805
  Receipt Date: 20110802
  Transmission Date: 20111222
  Serious: Yes (Death, Life-Threatening, Hospitalization, Other)
  Sender: FDA-Public Use
  Company Number: MX-B.I. PHARMACEUTICALS,INC./RIDGEFIELD-2011-MX-00193MX

PATIENT
  Age: 84 Year
  Sex: Female
  Weight: 60 kg

DRUGS (6)
  1. OMEPRAZOLE [Concomitant]
     Indication: GASTRITIS
     Route: 042
     Dates: start: 20110501, end: 20110501
  2. DABIGATRAN ETEXILATE [Suspect]
     Indication: DEEP VEIN THROMBOSIS
     Dosage: 150 MG
     Route: 048
     Dates: start: 20101101, end: 20110201
  3. ACETAMINOPHEN [Concomitant]
     Indication: ANTIINFLAMMATORY THERAPY
     Route: 042
     Dates: start: 20110501, end: 20110501
  4. ELEQUINE [Concomitant]
     Indication: ANTIBIOTIC PROPHYLAXIS
     Route: 048
     Dates: start: 20110501, end: 20110501
  5. GAMMADOL [Concomitant]
     Indication: PAIN
     Route: 042
     Dates: start: 20110501, end: 20110501
  6. CLONAZEPAM [Concomitant]
     Indication: INSOMNIA
     Route: 048
     Dates: start: 20110501, end: 20110501

REACTIONS (4)
  - ANAEMIA [None]
  - HAEMATOMA [None]
  - THROMBOPHLEBITIS [None]
  - POST PROCEDURAL HAEMORRHAGE [None]
